FAERS Safety Report 19688609 (Version 1)
Quarter: 2021Q3

REPORT INFORMATION
  Report Type: Spontaneous
  Country: US (occurrence: US)
  Receive Date: 20210812
  Receipt Date: 20210812
  Transmission Date: 20211014
  Serious: No
  Sender: FDA-Public Use
  Company Number: US-COLGATE PALMOLIVE COMPANY-20200901792

PATIENT
  Sex: Female

DRUGS (1)
  1. COLGATE TOTAL CLEAN MINT [Suspect]
     Active Substance: SODIUM FLUORIDE\TRICLOSAN
     Indication: DENTAL DISORDER PROPHYLAXIS
     Dosage: UNKNOWN DOSE, JUST USED ONE TIME
     Dates: start: 20200910, end: 202009

REACTIONS (1)
  - Mouth swelling [Recovered/Resolved]

NARRATIVE: CASE EVENT DATE: 20200910
